FAERS Safety Report 5232877-4 (Version None)
Quarter: 2007Q1

REPORT INFORMATION
  Report Type: 
  Country: None (occurrence: None)
  Receive Date: 20061204
  Receipt Date: 20060926
  Transmission Date: 20070707
  Serious: No
  Sender: FDA-Public Use
  Company Number: 2006-BP-10160BP

PATIENT
  Age: 62 Year
  Sex: Male
  Weight: 54.43 kg

DRUGS (3)
  1. SPIRIVA [Suspect]
     Dosage: (18 MCG),IH
     Dates: end: 20060101
  2. Q10 (UBIDECARENONE) [Concomitant]
  3. FISH OIL (FISH OIL) [Concomitant]

REACTIONS (4)
  - DYSURIA [None]
  - PROSTATIC DISORDER [None]
  - PYREXIA [None]
  - URINE FLOW DECREASED [None]
